FAERS Safety Report 15276727 (Version 1)
Quarter: 2018Q3

REPORT INFORMATION
  Report Type: Spontaneous
  Country: US (occurrence: US)
  Receive Date: 20180729
  Receipt Date: 20180729
  Transmission Date: 20181010
  Serious: Yes (Hospitalization)
  Sender: FDA-Public Use
  Company Number: None

PATIENT
  Age: 52 Year
  Sex: Female
  Weight: 141.75 kg

DRUGS (1)
  1. LYRICA [Suspect]
     Active Substance: PREGABALIN
     Indication: PAIN IN EXTREMITY
     Route: 048
     Dates: start: 20180212, end: 20180226

REACTIONS (9)
  - Dyspnoea [None]
  - Weight increased [None]
  - Pericardial effusion [None]
  - Impaired driving ability [None]
  - Confusional state [None]
  - Pleural effusion [None]
  - Condition aggravated [None]
  - Fluid retention [None]
  - Pain in extremity [None]

NARRATIVE: CASE EVENT DATE: 20180214
